FAERS Safety Report 20766418 (Version 2)
Quarter: 2022Q2

REPORT INFORMATION
  Report Type: Spontaneous
  Country: US (occurrence: None)
  Receive Date: 20220428
  Receipt Date: 20220502
  Transmission Date: 20220720
  Serious: No
  Sender: FDA-Public Use
  Company Number: 2022A154191

PATIENT
  Sex: Female

DRUGS (2)
  1. FASLODEX [Suspect]
     Active Substance: FULVESTRANT
     Route: 030
  2. IBRANCE [Suspect]
     Active Substance: PALBOCICLIB
     Indication: Breast cancer
     Route: 048
     Dates: start: 202109

REACTIONS (6)
  - Blood glucose increased [Unknown]
  - Arthralgia [Unknown]
  - Pruritus [Unknown]
  - Constipation [Unknown]
  - Fatigue [Recovering/Resolving]
  - Product dose omission issue [Unknown]
